FAERS Safety Report 8047553-2 (Version None)
Quarter: 2012Q1

REPORT INFORMATION
  Report Type: 
  Country: None (occurrence: None)
  Receive Date: 20120116
  Receipt Date: 20120110
  Transmission Date: 20120608
  Serious: Yes (Hospitalization)
  Sender: FDA-Public Use
  Company Number: US-GLAXOSMITHKLINE-A0915676A

PATIENT
  Age: 70 Year
  Sex: Female

DRUGS (1)
  1. AVANDAMET [Suspect]
     Indication: DIABETES MELLITUS
     Route: 048
     Dates: start: 20000201, end: 20100212

REACTIONS (14)
  - HYPERTENSION [None]
  - FATIGUE [None]
  - CARDIAC FAILURE CONGESTIVE [None]
  - CORONARY ARTERY DISEASE [None]
  - AORTIC ARTERIOSCLEROSIS [None]
  - DYSPNOEA [None]
  - OEDEMA [None]
  - ASTHENIA [None]
  - FLUID RETENTION [None]
  - CEREBROVASCULAR ACCIDENT [None]
  - CHEST PAIN [None]
  - DIZZINESS [None]
  - DIASTOLIC DYSFUNCTION [None]
  - HYPERGLYCAEMIA [None]
